FAERS Safety Report 10511410 (Version 4)
Quarter: 2015Q1

REPORT INFORMATION
  Report Type: Spontaneous
  Country: US (occurrence: US)
  Receive Date: 20141010
  Receipt Date: 20150213
  Transmission Date: 20150720
  Serious: Yes (Hospitalization, Other)
  Sender: FDA-Public Use
  Company Number: US-BAYER-2014-148544

PATIENT
  Age: 25 Year
  Sex: Female
  Weight: 154 kg

DRUGS (5)
  1. MIRENA [Suspect]
     Active Substance: LEVONORGESTREL
     Indication: CONTRACEPTION
     Dosage: 20 MCG/24HR, CONT
     Route: 015
     Dates: start: 20081113, end: 20110705
  2. SEASONIQUE [Concomitant]
     Active Substance: ETHINYL ESTRADIOL\LEVONORGESTREL
  3. DIFLUCAN [Concomitant]
     Active Substance: FLUCONAZOLE
     Indication: PAIN
  4. DIFLUCAN [Concomitant]
     Active Substance: FLUCONAZOLE
     Indication: PAIN
     Dosage: AS NEEDED
  5. SYNTHROID [Concomitant]
     Active Substance: LEVOTHYROXINE SODIUM
     Indication: HYPOTHYROIDISM
     Dosage: UNK
     Dates: start: 1998, end: 2014

REACTIONS (7)
  - Injury [None]
  - Uterine perforation [None]
  - Pain [None]
  - Genital haemorrhage [None]
  - Device issue [None]
  - Abdominal pain lower [None]
  - Medical device discomfort [None]

NARRATIVE: CASE EVENT DATE: 20081201
